FAERS Safety Report 4543691-7 (Version None)
Quarter: 2004Q4

REPORT INFORMATION
  Report Type: 
  Country: None (occurrence: None)
  Receive Date: 20041229
  Receipt Date: 20041229
  Transmission Date: 20050328
  Serious: Yes (Life-Threatening)
  Sender: FDA-Public Use
  Company Number: None

PATIENT
  Age: 46 Year
  Sex: Male
  Weight: 83.9154 kg

DRUGS (1)
  1. CELEBREX [Suspect]
     Indication: ADENOMATOUS POLYPOSIS COLI
     Dosage: 400MG  TWICE A DAY  ORAL
     Route: 048

REACTIONS (1)
  - MYOCARDIAL INFARCTION [None]
